FAERS Safety Report 24570149 (Version 1)
Quarter: 2024Q4

REPORT INFORMATION
  Report Type: Report from Study
  Country: BE (occurrence: BE)
  Receive Date: 20241031
  Receipt Date: 20241031
  Transmission Date: 20250115
  Serious: Yes (Death, Hospitalization, Other)
  Sender: GLAXOSMITHKLINE
  Company Number: None

PATIENT

DRUGS (13)
  1. EPOPROSTENOL SODIUM [Suspect]
     Active Substance: EPOPROSTENOL SODIUM
     Indication: Pulmonary arterial hypertension
     Dosage: UNK (2NG/KG)
     Route: 042
     Dates: start: 20211110, end: 20211112
  2. EPOPROSTENOL SODIUM [Suspect]
     Active Substance: EPOPROSTENOL SODIUM
     Indication: Pulmonary arterial hypertension
     Dosage: UNK (4NG/KG)
     Route: 042
     Dates: start: 20211112, end: 20211115
  3. EPOPROSTENOL SODIUM [Suspect]
     Active Substance: EPOPROSTENOL SODIUM
     Dosage: UNK (7 NG/KG)
     Route: 042
     Dates: start: 20211115, end: 20211123
  4. EPOPROSTENOL SODIUM [Suspect]
     Active Substance: EPOPROSTENOL SODIUM
     Dosage: UNK (12.5 NG/KG)
     Route: 042
     Dates: start: 20211124, end: 20211201
  5. EPOPROSTENOL SODIUM [Suspect]
     Active Substance: EPOPROSTENOL SODIUM
     Dosage: UNK (13 NG/KG)
     Route: 042
     Dates: start: 20211201, end: 20211221
  6. EPOPROSTENOL SODIUM [Suspect]
     Active Substance: EPOPROSTENOL SODIUM
     Dosage: UNK (10NG/KG)
     Route: 042
     Dates: start: 20211221, end: 20211227
  7. EPOPROSTENOL SODIUM [Suspect]
     Active Substance: EPOPROSTENOL SODIUM
     Dosage: UNK (9NG/KG)
     Route: 042
     Dates: start: 20211227, end: 20211231
  8. EPOPROSTENOL SODIUM [Suspect]
     Active Substance: EPOPROSTENOL SODIUM
     Dosage: UNK (5NG/KG)
     Route: 042
     Dates: start: 20211231
  9. EPOPROSTENOL SODIUM [Suspect]
     Active Substance: EPOPROSTENOL SODIUM
     Dosage: UNK (13 NG/KG)
     Route: 042
     Dates: start: 20211123, end: 20211124
  10. REVATIO [Concomitant]
     Active Substance: SILDENAFIL CITRATE
     Indication: Pulmonary arterial hypertension
     Dosage: UNK
     Route: 048
     Dates: start: 20210318
  11. ATORVASTATIN [Concomitant]
     Active Substance: ATORVASTATIN
     Indication: Hyperlipidaemia
     Dosage: UNK
     Route: 048
  12. METFORMIN [Concomitant]
     Active Substance: METFORMIN HYDROCHLORIDE
     Indication: Type 2 diabetes mellitus
     Dosage: UNK
     Route: 048
  13. SPIRONOLACTONE [Concomitant]
     Active Substance: SPIRONOLACTONE
     Indication: Arrhythmia
     Dosage: UNK
     Route: 048

REACTIONS (10)
  - Cardiac failure [Fatal]
  - Pulmonary arterial hypertension [Fatal]
  - Disease progression [Fatal]
  - Hypotension [Unknown]
  - Syncope [Not Recovered/Not Resolved]
  - Infection [Recovered/Resolved]
  - Pain in jaw [Recovered/Resolved]
  - Headache [Recovered/Resolved]
  - Decreased appetite [Not Recovered/Not Resolved]
  - Weight decreased [Unknown]

NARRATIVE: CASE EVENT DATE: 20211201
